FAERS Safety Report 14993542 (Version 1)
Quarter: 2018Q2

REPORT INFORMATION
  Report Type: Spontaneous
  Country: GB (occurrence: GB)
  Receive Date: 20180611
  Receipt Date: 20180611
  Transmission Date: 20180711
  Serious: Yes (Hospitalization)
  Sender: FDA-Public Use
  Company Number: GB-AUROBINDO-AUR-APL-2018-030517

PATIENT
  Age: 70 Year
  Sex: Female
  Weight: 58 kg

DRUGS (2)
  1. NAPROXEN TABLET [Suspect]
     Active Substance: NAPROXEN
     Indication: PRODUCT USED FOR UNKNOWN INDICATION
     Dosage: 250 MILLIGRAM
     Route: 065
  2. PARACETAMOL [Concomitant]
     Active Substance: ACETAMINOPHEN
     Indication: PRODUCT USED FOR UNKNOWN INDICATION
     Dosage: 1 OR 2, 4 TIMES DAILY. ()
     Route: 065
     Dates: start: 20180411

REACTIONS (1)
  - Haematemesis [Recovering/Resolving]
